FAERS Safety Report 6450418-0 (Version None)
Quarter: 2009Q4

REPORT INFORMATION
  Report Type: 
  Country: None (occurrence: None)
  Receive Date: 20091123
  Receipt Date: 20091113
  Transmission Date: 20100525
  Serious: Yes (Other)
  Sender: FDA-Public Use
  Company Number: US-AMGEN-US374579

PATIENT
  Age: 71 Year
  Sex: Female

DRUGS (3)
  1. NEULASTA [Suspect]
     Indication: CHEMOTHERAPY
     Route: 058
  2. GEMCITABINE [Concomitant]
     Dates: start: 20071201
  3. OXALIPLATIN [Concomitant]
     Dates: start: 20071201

REACTIONS (1)
  - RASH MACULO-PAPULAR [None]
